FAERS Safety Report 6544907-8 (Version None)
Quarter: 2010Q1

REPORT INFORMATION
  Report Type: 
  Country: None (occurrence: None)
  Receive Date: 20100121
  Receipt Date: 20100112
  Transmission Date: 20100710
  Serious: Yes (Other)
  Sender: FDA-Public Use
  Company Number: US-JNJFOC-20100105177

PATIENT
  Sex: Female
  Weight: 48.08 kg

DRUGS (3)
  1. DURAGESIC-100 [Suspect]
     Indication: BACK INJURY
     Route: 062
  2. DURAGESIC-100 [Suspect]
     Route: 062
  3. SYNTHROID [Concomitant]
     Indication: HYPOTHYROIDISM
     Route: 048

REACTIONS (9)
  - ACTIVITIES OF DAILY LIVING IMPAIRED [None]
  - CHEST PAIN [None]
  - HYPERHIDROSIS [None]
  - HYPERSOMNIA [None]
  - HYPOVENTILATION [None]
  - MITRAL VALVE PROLAPSE [None]
  - PANIC ATTACK [None]
  - PRODUCT QUALITY ISSUE [None]
  - VISUAL ACUITY REDUCED [None]
